FAERS Safety Report 7079501-6 (Version None)
Quarter: 2010Q4

REPORT INFORMATION
  Report Type: 
  Country: None (occurrence: None)
  Receive Date: 20101102
  Receipt Date: 20101020
  Transmission Date: 20110411
  Serious: Yes (Death, Other)
  Sender: FDA-Public Use
  Company Number: HU-ELI_LILLY_AND_COMPANY-HU201010004909

PATIENT
  Age: 37 Year
  Sex: Male

DRUGS (2)
  1. ZYPADHERA [Suspect]
     Indication: SCHIZOPHRENIA
     Dosage: 210 MG/ 2 WEEKS
     Route: 030
     Dates: start: 20101005, end: 20101005
  2. ZYPREXA [Suspect]
     Indication: SCHIZOPHRENIA

REACTIONS (2)
  - COMPLETED SUICIDE [None]
  - SUICIDE ATTEMPT [None]
